FAERS Safety Report 6416169-3 (Version None)
Quarter: 2009Q4

REPORT INFORMATION
  Report Type: 
  Country: None (occurrence: None)
  Receive Date: 20091027
  Receipt Date: 20091021
  Transmission Date: 20100525
  Serious: Yes (Hospitalization, Other)
  Sender: FDA-Public Use
  Company Number: GB-TEVA-213185ISR

PATIENT
  Age: 40 Year
  Sex: Female

DRUGS (5)
  1. AMITRIPTYLINE [Suspect]
     Indication: MOOD ALTERED
  2. CITALOPRAM HYDROBROMIDE [Suspect]
     Indication: DEPRESSED MOOD
     Route: 048
  3. OMEPRAZOLE [Suspect]
     Indication: COLITIS ULCERATIVE
  4. CLOZAPINE [Suspect]
     Indication: SCHIZOPHRENIA
     Route: 048
     Dates: start: 20000805, end: 20090914
  5. LITHIUM CARBONATE [Suspect]
     Indication: AFFECTIVE DISORDER
     Route: 048

REACTIONS (9)
  - DIARRHOEA [None]
  - DRUG DOSE OMISSION [None]
  - INTESTINAL OBSTRUCTION [None]
  - INTESTINAL RESECTION [None]
  - NEUTROPHIL COUNT INCREASED [None]
  - PLATELET COUNT INCREASED [None]
  - PULMONARY THROMBOSIS [None]
  - VOMITING [None]
  - WHITE BLOOD CELL COUNT INCREASED [None]
